FAERS Safety Report 10443961 (Version 1)
Quarter: 2014Q3

REPORT INFORMATION
  Report Type: Spontaneous
  Country: US (occurrence: US)
  Receive Date: 20140910
  Receipt Date: 20140910
  Transmission Date: 20150326
  Serious: No
  Sender: FDA-Public Use
  Company Number: US-TARO-2014P1002022

PATIENT
  Sex: Male
  Weight: 86.18 kg

DRUGS (2)
  1. WARFARIN SODIUM TABLETS USP 2.5MG [Suspect]
     Active Substance: WARFARIN SODIUM
     Route: 048
     Dates: start: 201402
  2. WARFARIN SODIUM TABLETS USP 2.5MG [Suspect]
     Active Substance: WARFARIN SODIUM
     Route: 048
     Dates: start: 20130830, end: 201402

REACTIONS (7)
  - Arthralgia [Unknown]
  - Eructation [Unknown]
  - Abdominal distension [Unknown]
  - Muscle strain [Unknown]
  - Headache [Unknown]
  - Pruritus generalised [Recovered/Resolved]
  - Hunger [Unknown]

NARRATIVE: CASE EVENT DATE: 2013
